FAERS Safety Report 8147120-6 (Version None)
Quarter: 2012Q1

REPORT INFORMATION
  Report Type: 
  Country: None (occurrence: None)
  Receive Date: 20120218
  Receipt Date: 20110113
  Transmission Date: 20120608
  Serious: No
  Sender: FDA-Public Use
  Company Number: US-ALLERGAN-1100471US

PATIENT
  Age: 42 Year
  Sex: Female

DRUGS (6)
  1. BOTOX COSMETIC [Suspect]
     Indication: SKIN WRINKLING
     Dosage: 12 UNITS, SINGLE
     Route: 030
     Dates: start: 20101007, end: 20101007
  2. THYROID MEDICATION [Concomitant]
     Indication: THYROID DISORDER
     Dosage: UNK
  3. CALCIUM [Concomitant]
     Indication: SUPPLEMENTATION THERAPY
  4. VITAMIN D [Suspect]
     Indication: SUPPLEMENTATION THERAPY
  5. BOTOX COSMETIC [Suspect]
     Dosage: 6 UNK, UNK
     Route: 030
     Dates: start: 20101129, end: 20101129
  6. CHOLESTEROL MEDICATION [Concomitant]
     Indication: BLOOD CHOLESTEROL

REACTIONS (2)
  - INJECTION SITE REACTION [None]
  - DRUG INEFFECTIVE [None]
